FAERS Safety Report 11124028 (Version 1)
Quarter: 2015Q2

REPORT INFORMATION
  Report Type: Spontaneous
  Country: US (occurrence: US)
  Receive Date: 20150520
  Receipt Date: 20150520
  Transmission Date: 20150821
  Serious: Yes (Other)
  Sender: FDA-Public Use
  Company Number: US-RB-077166-15

PATIENT
  Sex: Female

DRUGS (1)
  1. MUCINEX MAXIMUM STRENGTH [Suspect]
     Active Substance: GUAIFENESIN
     Indication: PULMONARY CONGESTION
     Dosage: SHE LAST TOOK THE DRUG ON 05-MAY-2015 AT 12:00PM.
     Route: 065
     Dates: start: 2005

REACTIONS (1)
  - Blood pressure increased [Recovered/Resolved]
